FAERS Safety Report 6082771-4 (Version None)
Quarter: 2009Q1

REPORT INFORMATION
  Report Type: 
  Country: None (occurrence: None)
  Receive Date: 20090218
  Receipt Date: 20090212
  Transmission Date: 20090719
  Serious: No
  Sender: FDA-Public Use
  Company Number: PL-SANOFI-SYNTHELABO-F01200900138

PATIENT
  Sex: Male
  Weight: 89 kg

DRUGS (4)
  1. HYPERTENSIVE MEDICATION [Concomitant]
     Dosage: UNK
  2. TAXOTERE [Suspect]
     Dosage: 150 MG
     Route: 041
     Dates: start: 20081216, end: 20081216
  3. CASODEX [Suspect]
     Dosage: 50 MG
     Route: 048
     Dates: start: 20081014, end: 20081112
  4. ELIGARD [Suspect]
     Indication: PROSTATE CANCER
     Dosage: 22.5 MG
     Route: 058
     Dates: start: 20081216, end: 20081216

REACTIONS (1)
  - MEDICATION ERROR [None]
